FAERS Safety Report 10207196 (Version 1)
Quarter: 2014Q2

REPORT INFORMATION
  Report Type: Spontaneous
  Country: US (occurrence: US)
  Receive Date: 20140530
  Receipt Date: 20140530
  Transmission Date: 20141212
  Serious: No
  Sender: FDA-Public Use
  Company Number: US-GLAXOSMITHKLINE-A1023550A

PATIENT
  Age: 10 Year
  Sex: Male
  Weight: 94.1 kg

DRUGS (2)
  1. VENTOLIN [Suspect]
     Route: 055
  2. VENTOLIN [Concomitant]
     Route: 065

REACTIONS (1)
  - Tremor [Unknown]
